FAERS Safety Report 7343117-4 (Version None)
Quarter: 2011Q1

REPORT INFORMATION
  Report Type: 
  Country: None (occurrence: None)
  Receive Date: 20110310
  Receipt Date: 20110228
  Transmission Date: 20110831
  Serious: Yes (Other)
  Sender: FDA-Public Use
  Company Number: CA-JNJFOC-20110301265

PATIENT
  Age: 11 Year
  Sex: Male

DRUGS (3)
  1. BENADRYL [Suspect]
     Indication: MULTIPLE ALLERGIES
     Dosage: ONE CAPLET
     Route: 048
  2. BENADRYL [Suspect]
     Route: 048
  3. PRESCRIPTION MEDICATIONS UNSPECIFIED [Concomitant]
     Route: 065

REACTIONS (1)
  - RESPIRATORY ARREST [None]
